FAERS Safety Report 9305430 (Version 1)
Quarter: 2013Q2

REPORT INFORMATION
  Report Type: Spontaneous
  Country: US (occurrence: US)
  Receive Date: 20130523
  Receipt Date: 20130523
  Transmission Date: 20140414
  Serious: No
  Sender: FDA-Public Use
  Company Number: US-VERTEX PHARMACEUTICALS INC-2013-006252

PATIENT
  Age: 57 Year
  Sex: Male
  Weight: 96 kg

DRUGS (7)
  1. INCIVEK [Suspect]
     Indication: HEPATITIS C
     Dosage: 750 MG, TID
     Route: 048
     Dates: start: 20130410
  2. PEGASYS [Suspect]
     Indication: HEPATITIS C
     Dosage: 180 ?G, QW
     Route: 058
     Dates: start: 20130410, end: 20130507
  3. PEGASYS [Suspect]
     Dosage: 180 ?G, QW
     Route: 058
     Dates: start: 20130516
  4. COPEGUS [Suspect]
     Indication: HEPATITIS C
     Dosage: 600 MG, BID
     Route: 048
     Dates: start: 20130410, end: 20130507
  5. COPEGUS [Suspect]
     Dosage: 600 MG, BID
     Route: 048
     Dates: start: 20130516
  6. CORTISOL [Concomitant]
     Indication: HAEMORRHOIDS
     Dosage: UNK, PRN
  7. CORTISOL [Concomitant]
     Indication: RECTAL HAEMORRHAGE

REACTIONS (6)
  - Faeces discoloured [Not Recovered/Not Resolved]
  - Dry skin [Not Recovered/Not Resolved]
  - Lethargy [Not Recovered/Not Resolved]
  - Rectal haemorrhage [Not Recovered/Not Resolved]
  - Haematochezia [Not Recovered/Not Resolved]
  - Pruritus [Not Recovered/Not Resolved]
